FAERS Safety Report 8564928-3 (Version None)
Quarter: 2012Q3

REPORT INFORMATION
  Report Type: 
  Country: None (occurrence: None)
  Receive Date: 20120803
  Receipt Date: 20120802
  Transmission Date: 20120928
  Serious: Yes (Death, Hospitalization, Other)
  Sender: FDA-Public Use
  Company Number: HU-BRISTOL-MYERS SQUIBB COMPANY-16228934

PATIENT
  Age: 73 Year
  Sex: Male

DRUGS (6)
  1. PLACEBO [Suspect]
     Indication: TYPE 2 DIABETES MELLITUS
     Dates: start: 20110214
  2. BLINDED: SAXAGLIPTIN [Suspect]
     Indication: TYPE 2 DIABETES MELLITUS
     Dates: start: 20110214, end: 20111116
  3. ASPIRIN [Concomitant]
  4. METFORMIN HCL [Suspect]
     Indication: TYPE 2 DIABETES MELLITUS
     Dosage: BEFORE RANDMIZATION-2FEB12,1500MG 3FEB12-CONT, 2000MG
     Dates: end: 20110903
  5. DIAPREL [Suspect]
     Indication: TYPE 2 DIABETES MELLITUS
     Dates: end: 20110830
  6. HUMULIN INSULIN [Suspect]
     Indication: TYPE 2 DIABETES MELLITUS
     Dosage: 1 DF: 32 UNIT NOS,32IU/U
     Dates: start: 20110908

REACTIONS (3)
  - PANCREATIC CARCINOMA METASTATIC [None]
  - HYPERGLYCAEMIA [None]
  - JAUNDICE [None]
